FAERS Safety Report 5623690-4 (Version None)
Quarter: 2008Q1

REPORT INFORMATION
  Report Type: 
  Country: None (occurrence: None)
  Receive Date: 20080129
  Receipt Date: 20070716
  Transmission Date: 20080703
  Serious: Yes (Other)
  Sender: FDA-Public Use
  Company Number: WAES 0707USA02537

PATIENT
  Sex: Male

DRUGS (10)
  1. PRIMAXIN [Suspect]
     Dosage: 500 MG, Q8H
     Route: 042
     Dates: start: 20070205, end: 20070212
  2. IMDUR [Concomitant]
  3. NPH INSULIN [Concomitant]
  4. PROTONIX [Concomitant]
  5. REGLAN [Concomitant]
  6. TYGACIL [Concomitant]
  7. AMIODARONE HCL [Concomitant]
  8. HYDRALAZINE HCL [Concomitant]
  9. METRONIDAZOLE HCL [Concomitant]
  10. MINOCYCLINE HCL [Concomitant]

REACTIONS (2)
  - BLOOD CREATININE INCREASED [None]
  - CONFUSIONAL STATE [None]
